FAERS Safety Report 6440495-5 (Version None)
Quarter: 2009Q4

REPORT INFORMATION
  Report Type: 
  Country: None (occurrence: None)
  Receive Date: 20091113
  Receipt Date: 20091030
  Transmission Date: 20100525
  Serious: Yes (Hospitalization, Other)
  Sender: FDA-Public Use
  Company Number: AT-GENENTECH-291751

PATIENT
  Sex: Female
  Weight: 80 kg

DRUGS (2)
  1. LUCENTIS [Suspect]
     Indication: CHOROIDAL NEOVASCULARISATION
     Dosage: UNK
     Route: 065
     Dates: start: 20090701, end: 20090922
  2. AVASTIN [Suspect]
     Indication: DRUG USE FOR UNKNOWN INDICATION

REACTIONS (5)
  - ENDOPHTHALMITIS [None]
  - EYE PAIN [None]
  - RETINAL CYST [None]
  - VISUAL ACUITY REDUCED [None]
  - VITRECTOMY [None]
